FAERS Safety Report 23118630 (Version 1)
Quarter: 2023Q4

REPORT INFORMATION
  Report Type: Report from Study
  Country: CN (occurrence: CN)
  Receive Date: 20231028
  Receipt Date: 20231028
  Transmission Date: 20240110
  Serious: Yes (Other)
  Sender: FDA-Public Use
  Company Number: CN-UCBSA-2023029205

PATIENT
  Age: 14 Year
  Sex: Male
  Weight: 65 kg

DRUGS (10)
  1. LACOSAMIDE [Suspect]
     Active Substance: LACOSAMIDE
     Indication: Product used for unknown indication
     Dosage: 100 MILLIGRAM, TOTAL DAILY DOSE
     Dates: start: 20230222, end: 20230228
  2. LACOSAMIDE [Suspect]
     Active Substance: LACOSAMIDE
     Dosage: 200 MILLIGRAM TOTAL DAILY DOSE
     Dates: start: 20230301, end: 20230321
  3. LACOSAMIDE [Suspect]
     Active Substance: LACOSAMIDE
     Dosage: 300 MILLIGRAM TOTAL DAILY DOSE
     Dates: start: 20230322, end: 20230815
  4. OXCARBAZEPINE [Concomitant]
     Active Substance: OXCARBAZEPINE
     Indication: Epilepsy
     Dosage: 0.3 GRAM, 2X/DAY (BID)
     Dates: start: 20131216, end: 202106
  5. OXCARBAZEPINE [Concomitant]
     Active Substance: OXCARBAZEPINE
     Dosage: 0.3 GRAM, 2X/DAY (BID)
     Dates: start: 202106
  6. LEVETIRACETAM [Concomitant]
     Active Substance: LEVETIRACETAM
     Indication: Epilepsy
     Dosage: 0.5 GRAM, 2X/DAY (BID)
     Dates: start: 20140424, end: 201505
  7. LEVETIRACETAM [Concomitant]
     Active Substance: LEVETIRACETAM
     Dosage: 0.25 GRAM, 2X/DAY (BID)
     Dates: start: 201504, end: 20180911
  8. LEVETIRACETAM [Concomitant]
     Active Substance: LEVETIRACETAM
     Dosage: 0.5 GRAM, 2X/DAY (BID)
     Dates: start: 20180911, end: 202011
  9. LEVETIRACETAM [Concomitant]
     Active Substance: LEVETIRACETAM
     Dosage: 0.75 GRAM, 2X/DAY (BID)
     Dates: start: 202104, end: 202106
  10. LEVETIRACETAM [Concomitant]
     Active Substance: LEVETIRACETAM
     Dosage: 0.5 GRAM, 2X/DAY (BID)
     Dates: start: 202106

REACTIONS (1)
  - Hyperbilirubinaemia [Recovered/Resolved]

NARRATIVE: CASE EVENT DATE: 20230517
